FAERS Safety Report 7362445-X (Version None)
Quarter: 2011Q1

REPORT INFORMATION
  Report Type: 
  Country: None (occurrence: None)
  Receive Date: 20110318
  Receipt Date: 20110310
  Transmission Date: 20110831
  Serious: Yes (Other)
  Sender: FDA-Public Use
  Company Number: FR-ABBOTT-11P-056-0710986-00

PATIENT
  Age: 18 Year

DRUGS (2)
  1. CYCLOSPORINE [Suspect]
     Indication: STEVENS-JOHNSON SYNDROME
     Dosage: DAILY FOR 10 DAYS, THEN TAPERED OVER A MONTH
     Route: 048
  2. CYCLOSPORINE [Suspect]
     Indication: TOXIC EPIDERMAL NECROLYSIS

REACTIONS (3)
  - DELIRIUM [None]
  - LEUKOENCEPHALOPATHY [None]
  - HALLUCINATION [None]
